FAERS Safety Report 23476223 (Version 1)
Quarter: 2024Q1

REPORT INFORMATION
  Report Type: Report from Study
  Country: US (occurrence: US)
  Receive Date: 20240204
  Receipt Date: 20240204
  Transmission Date: 20240410
  Serious: No
  Sender: FDA-Public Use
  Company Number: US-EXELIXIS-CABO-23062268

PATIENT
  Age: 75 Year
  Sex: Male

DRUGS (22)
  1. CABOMETYX [Suspect]
     Active Substance: CABOZANTINIB S-MALATE
     Indication: Thyroid cancer
     Dosage: 60 MG
     Dates: start: 20230304, end: 20230326
  2. CABOMETYX [Suspect]
     Active Substance: CABOZANTINIB S-MALATE
     Dosage: 60 MG, QD
     Dates: start: 20230401
  3. TRAMADOL [Concomitant]
     Active Substance: TRAMADOL\TRAMADOL HYDROCHLORIDE
  4. TAMSULOSIN [Concomitant]
     Active Substance: TAMSULOSIN
  5. ALLOPURINOL [Concomitant]
     Active Substance: ALLOPURINOL
  6. PROCHLORPERAZINE [Concomitant]
     Active Substance: PROCHLORPERAZINE
  7. ONDANSETRON [Concomitant]
     Active Substance: ONDANSETRON
  8. CITALOPRAM [Concomitant]
     Active Substance: CITALOPRAM HYDROBROMIDE
  9. CETIRIZINE HYDROCHLORIDE [Concomitant]
     Active Substance: CETIRIZINE HYDROCHLORIDE
  10. LEVOTHYROXINE [Concomitant]
     Active Substance: LEVOTHYROXINE\LEVOTHYROXINE SODIUM
  11. LOPERAMIDE [Concomitant]
     Active Substance: LOPERAMIDE
  12. BUDESONIDE [Concomitant]
     Active Substance: BUDESONIDE
  13. ARFORMOTEROL [Concomitant]
     Active Substance: ARFORMOTEROL
  14. CALTRATE [Concomitant]
     Active Substance: CALCIUM CARBONATE
  15. NIACIN [Concomitant]
     Active Substance: NIACIN
  16. VITAMIN D3 [Concomitant]
     Active Substance: CHOLECALCIFEROL
  17. FLUTICASONE [Concomitant]
     Active Substance: FLUTICASONE
  18. ALBUTEROL [Concomitant]
     Active Substance: ALBUTEROL
  19. VITAMIN B12 [Concomitant]
     Active Substance: CYANOCOBALAMIN
  20. FISH OIL [Concomitant]
     Active Substance: FISH OIL
  21. BREO ELLIPTA [Concomitant]
     Active Substance: FLUTICASONE FUROATE\VILANTEROL TRIFENATATE
  22. KRILL OIL [Concomitant]
     Active Substance: DIETARY SUPPLEMENT\KRILL OIL
     Dosage: UNK

REACTIONS (16)
  - Pain in jaw [Recovered/Resolved]
  - Balance disorder [Unknown]
  - Erythema [Unknown]
  - Gingival disorder [Unknown]
  - Peripheral swelling [Unknown]
  - Tongue erythema [Unknown]
  - Pain in extremity [Unknown]
  - Stomatitis [Unknown]
  - Dysphonia [Unknown]
  - Blood pressure increased [Recovering/Resolving]
  - Nausea [Unknown]
  - Fatigue [Unknown]
  - Gastrointestinal motility disorder [Unknown]
  - Skin lesion [Unknown]
  - Pulmonary mass [Not Recovered/Not Resolved]
  - Bone lesion [Not Recovered/Not Resolved]

NARRATIVE: CASE EVENT DATE: 20230301
